FAERS Safety Report 8817053 (Version 1)
Quarter: 2012Q4

REPORT INFORMATION
  Report Type: Spontaneous
  Country: US (occurrence: None)
  Receive Date: 20121003
  Receipt Date: 20121003
  Transmission Date: 20130627
  Serious: Yes (Hospitalization, Disabling)
  Sender: FDA-Public Use
  Company Number: None

PATIENT
  Age: 37 Year
  Sex: Female
  Weight: 112.49 kg

DRUGS (1)
  1. MIRENA [Suspect]
     Indication: CONTRACEPTION
     Dates: start: 20050405, end: 20120724

REACTIONS (9)
  - Vaginal haemorrhage [None]
  - Alopecia [None]
  - Complication of device removal [None]
  - Back pain [None]
  - Blood pressure inadequately controlled [None]
  - Mood swings [None]
  - Abdominal pain [None]
  - Hypoaesthesia [None]
  - Device dislocation [None]
